FAERS Safety Report 21584971 (Version 1)
Quarter: 2022Q4

REPORT INFORMATION
  Report Type: Spontaneous
  Country: IN (occurrence: IN)
  Receive Date: 20221111
  Receipt Date: 20221111
  Transmission Date: 20230113
  Serious: Yes (Hospitalization, Other)
  Sender: FDA-Public Use
  Company Number: IN-PFIZER INC-PV202200100147

PATIENT
  Age: 21 Year
  Sex: Male

DRUGS (1)
  1. INOTUZUMAB OZOGAMICIN [Suspect]
     Active Substance: INOTUZUMAB OZOGAMICIN
     Indication: Acute lymphocytic leukaemia recurrent
     Dosage: 1 MG, CYCLIC (DAY 1, DAY 8, DAY 15)
     Route: 042
     Dates: start: 20221031

REACTIONS (4)
  - Pneumonia [Unknown]
  - Platelet count decreased [Unknown]
  - Condition aggravated [Unknown]
  - Red blood cell count decreased [Unknown]

NARRATIVE: CASE EVENT DATE: 20221107
